FAERS Safety Report 9736505 (Version 1)
Quarter: 2013Q4

REPORT INFORMATION
  Report Type: Spontaneous
  Country: IT (occurrence: IT)
  Receive Date: 20131206
  Receipt Date: 20131206
  Transmission Date: 20140711
  Serious: Yes (Other)
  Sender: FDA-Public Use
  Company Number: IT-TEVA-446818ISR

PATIENT
  Age: 69 Year
  Sex: Female
  Weight: 58 kg

DRUGS (3)
  1. IRINOTECAN HYDROCHLORIDE DIHYDRATE [Suspect]
     Indication: RECTAL ADENOCARCINOMA
     Dosage: 290 MG CYCLICAL
     Route: 042
     Dates: start: 20130222, end: 20130311
  2. FLUOROURACIL [Suspect]
     Indication: RECTAL ADENOCARCINOMA
     Dosage: 660 MG CYCLICAL
     Route: 042
     Dates: start: 20130222, end: 20130817
  3. LEVOFOLINIC ACID [Suspect]
     Indication: RECTAL ADENOCARCINOMA
     Dosage: 330 MG CYCLICAL
     Route: 042
     Dates: start: 20130222, end: 20130817

REACTIONS (3)
  - Neutropenia [Recovering/Resolving]
  - Asthenia [Recovering/Resolving]
  - Vomiting [Unknown]
